FAERS Safety Report 10789634 (Version 1)
Quarter: 2015Q1

REPORT INFORMATION
  Report Type: Spontaneous
  Country: FI (occurrence: FI)
  Receive Date: 20150212
  Receipt Date: 20150212
  Transmission Date: 20150721
  Serious: Yes (Other)
  Sender: FDA-Public Use
  Company Number: FI-SA-2015SA015388

PATIENT
  Age: 34 Year
  Sex: Female

DRUGS (3)
  1. DIANE NOVA [Concomitant]
     Indication: CONTRACEPTION
     Route: 048
     Dates: start: 19930101
  2. ARAVA [Suspect]
     Active Substance: LEFLUNOMIDE
     Indication: RHEUMATOID ARTHRITIS
     Route: 048
     Dates: start: 20150120, end: 20150128
  3. DIANE NOVA [Concomitant]
     Indication: ACNE
     Route: 048
     Dates: start: 19930101

REACTIONS (4)
  - Conjunctival haemorrhage [Not Recovered/Not Resolved]
  - Face oedema [Not Recovered/Not Resolved]
  - Conjunctival oedema [Not Recovered/Not Resolved]
  - Flushing [Not Recovered/Not Resolved]

NARRATIVE: CASE EVENT DATE: 20150128
